FAERS Safety Report 13098322 (Version 1)
Quarter: 2017Q1

REPORT INFORMATION
  Report Type: Spontaneous
  Country: US (occurrence: US)
  Receive Date: 20170109
  Receipt Date: 20170109
  Transmission Date: 20170428
  Serious: Yes (Other)
  Sender: FDA-Public Use
  Company Number: US-TEVA-727308USA

PATIENT
  Age: 57 Year
  Sex: Male

DRUGS (1)
  1. COPAXONE [Suspect]
     Active Substance: GLATIRAMER ACETATE
     Indication: MULTIPLE SCLEROSIS
     Route: 058
     Dates: start: 20140505

REACTIONS (5)
  - Immediate post-injection reaction [Recovered/Resolved]
  - Muscle spasms [Recovered/Resolved]
  - Hot flush [Recovered/Resolved]
  - Back pain [Recovered/Resolved]
  - Motor dysfunction [Recovered/Resolved]

NARRATIVE: CASE EVENT DATE: 201609
